FAERS Safety Report 14258246 (Version 2)
Quarter: 2017Q4

REPORT INFORMATION
  Report Type: Spontaneous
  Country: GB (occurrence: GB)
  Receive Date: 20171207
  Receipt Date: 20171221
  Transmission Date: 20180321
  Serious: Yes (Other)
  Sender: FDA-Public Use
  Company Number: GB-JNJFOC-20171201788

PATIENT
  Sex: Female

DRUGS (2)
  1. REGAINE FOAM FOR WOMEN 5% [Suspect]
     Active Substance: MINOXIDIL
     Route: 061
  2. REGAINE FOAM FOR WOMEN 5% [Suspect]
     Active Substance: MINOXIDIL
     Indication: ALOPECIA
     Route: 061

REACTIONS (1)
  - Neoplasm malignant [Unknown]
